FAERS Safety Report 25035520 (Version 1)
Quarter: 2025Q1

REPORT INFORMATION
  Report Type: Spontaneous
  Country: GB (occurrence: GB)
  Receive Date: 20250304
  Receipt Date: 20250304
  Transmission Date: 20250409
  Serious: Yes (Disabling, Other)
  Sender: JUBILANT - No Location Specified
  Company Number: None

PATIENT
  Age: 64 Year

DRUGS (5)
  1. PAROXETINE [Suspect]
     Active Substance: PAROXETINE
     Indication: Adverse drug reaction
     Dosage: 30 MG, ONCE PER DAY (UPTO 40MG)
     Route: 065
     Dates: start: 19990201
  2. PAROXETINE [Suspect]
     Active Substance: PAROXETINE
     Indication: Panic disorder
  3. PAROXETINE [Suspect]
     Active Substance: PAROXETINE
     Indication: Anxiety
  4. CITALOPRAM [Suspect]
     Active Substance: CITALOPRAM
     Indication: Panic disorder
     Dosage: 40 MG, ONCE PER DAY
     Route: 065
     Dates: start: 2010, end: 202304
  5. CITALOPRAM [Suspect]
     Active Substance: CITALOPRAM
     Indication: Anxiety

REACTIONS (5)
  - Sexual dysfunction [Not Recovered/Not Resolved]
  - Erectile dysfunction [Not Recovered/Not Resolved]
  - Premature ejaculation [Not Recovered/Not Resolved]
  - Sexual dysfunction [Not Recovered/Not Resolved]
  - Anhedonia [Not Recovered/Not Resolved]
